FAERS Safety Report 5951462-X (Version None)
Quarter: 2008Q4

REPORT INFORMATION
  Report Type: 
  Country: None (occurrence: None)
  Receive Date: 20081113
  Receipt Date: 20081107
  Transmission Date: 20090506
  Serious: Yes (Other)
  Sender: FDA-Public Use
  Company Number: US-BAYER-200813262BCC

PATIENT
  Age: 68 Year
  Sex: Female
  Weight: 61 kg

DRUGS (1)
  1. ASPIRIN [Suspect]
     Indication: DRUG USE FOR UNKNOWN INDICATION
     Route: 048
     Dates: start: 19980101

REACTIONS (2)
  - GASTRIC ULCER [None]
  - WEIGHT DECREASED [None]
